FAERS Safety Report 13972446 (Version 6)
Quarter: 2019Q3

REPORT INFORMATION
  Report Type: Spontaneous
  Country: JP (occurrence: JP)
  Receive Date: 20170914
  Receipt Date: 20190724
  Transmission Date: 20191004
  Serious: Yes (Hospitalization)
  Sender: FDA-Public Use
  Company Number: JP-CELGENEUS-JPN-20170901717

PATIENT
  Age: 78 Year
  Sex: Female
  Weight: 41.8 kg

DRUGS (55)
  1. ACETAMINOPHEN. [Concomitant]
     Active Substance: ACETAMINOPHEN
     Dosage: 400
     Route: 048
     Dates: start: 20170328
  2. ACETAMINOPHEN. [Concomitant]
     Active Substance: ACETAMINOPHEN
     Dosage: 400
     Route: 048
     Dates: start: 20170404
  3. ACETAMINOPHEN. [Concomitant]
     Active Substance: ACETAMINOPHEN
     Dosage: 400
     Route: 048
     Dates: start: 20170418
  4. DEXCHLORPHENIRAMINE [Concomitant]
     Active Substance: DEXCHLORPHENIRAMINE
     Dosage: 5
     Route: 041
     Dates: start: 20170627
  5. DEXCHLORPHENIRAMINE [Concomitant]
     Active Substance: DEXCHLORPHENIRAMINE
     Dosage: 5
     Route: 041
     Dates: start: 20170725
  6. RANITIDINE. [Concomitant]
     Active Substance: RANITIDINE
     Dosage: 50
     Route: 041
     Dates: start: 20170425
  7. RANITIDINE. [Concomitant]
     Active Substance: RANITIDINE
     Dosage: 50
     Route: 041
     Dates: start: 20170822
  8. MAGNESIUM [Concomitant]
     Active Substance: MAGNESIUM
     Indication: PRODUCT USED FOR UNKNOWN INDICATION
     Route: 065
     Dates: start: 20170823
  9. DEXCHLORPHENIRAMINE [Concomitant]
     Active Substance: DEXCHLORPHENIRAMINE
     Dosage: 5
     Route: 041
     Dates: start: 20170425
  10. RANITIDINE. [Concomitant]
     Active Substance: RANITIDINE
     Dosage: 5
     Route: 041
     Dates: start: 20170321
  11. RANITIDINE. [Concomitant]
     Active Substance: RANITIDINE
     Dosage: 50
     Route: 041
     Dates: start: 20170404
  12. ACETYLSALICYLIC ACID [Concomitant]
     Active Substance: ASPIRIN
     Indication: THROMBOSIS PROPHYLAXIS
     Route: 065
     Dates: start: 20170307
  13. HYALURONATE [Concomitant]
     Active Substance: HYALURONIC ACID
     Indication: PRODUCT USED FOR UNKNOWN INDICATION
     Route: 065
     Dates: start: 20170725
  14. DEXAMETHASONE ORAL [Suspect]
     Active Substance: DEXAMETHASONE
     Indication: PLASMA CELL MYELOMA
     Dosage: 20 MILLIGRAM
     Route: 048
     Dates: start: 20170307, end: 20170829
  15. DEXCHLORPHENIRAMINE [Concomitant]
     Active Substance: DEXCHLORPHENIRAMINE
     Indication: PRODUCT USED FOR UNKNOWN INDICATION
     Dosage: 5
     Route: 041
     Dates: start: 20170307
  16. DEXCHLORPHENIRAMINE [Concomitant]
     Active Substance: DEXCHLORPHENIRAMINE
     Dosage: 50
     Route: 041
     Dates: start: 20170530
  17. RANITIDINE. [Concomitant]
     Active Substance: RANITIDINE
     Dosage: 50
     Route: 041
     Dates: start: 20170314
  18. RANITIDINE. [Concomitant]
     Active Substance: RANITIDINE
     Dosage: 50
     Route: 041
     Dates: start: 20170530
  19. RANITIDINE. [Concomitant]
     Active Substance: RANITIDINE
     Dosage: 50
     Route: 041
     Dates: start: 20170725
  20. MAGNESIUM [Concomitant]
     Active Substance: MAGNESIUM
     Route: 065
     Dates: start: 20170904
  21. POMALYST [Suspect]
     Active Substance: POMALIDOMIDE
     Indication: PLASMA CELL MYELOMA
     Dosage: 4 MILLIGRAM
     Route: 048
     Dates: start: 20170307
  22. DEXAMETHASONE IV [Suspect]
     Active Substance: DEXAMETHASONE
     Indication: PLASMA CELL MYELOMA
     Dosage: 8 MILLIGRAM
     Route: 041
     Dates: start: 20170307, end: 20170919
  23. ELOTUZUMAB. [Concomitant]
     Active Substance: ELOTUZUMAB
     Dosage: 20 MILLIGRAM/KILOGRAM
     Route: 065
     Dates: end: 20170919
  24. ACETAMINOPHEN. [Concomitant]
     Active Substance: ACETAMINOPHEN
     Indication: PRODUCT USED FOR UNKNOWN INDICATION
     Dosage: 400
     Route: 048
     Dates: start: 20170307
  25. ACETAMINOPHEN. [Concomitant]
     Active Substance: ACETAMINOPHEN
     Dosage: 400
     Route: 048
     Dates: start: 20170314
  26. ACETAMINOPHEN. [Concomitant]
     Active Substance: ACETAMINOPHEN
     Dosage: 400
     Route: 048
     Dates: start: 20170530
  27. ACETAMINOPHEN. [Concomitant]
     Active Substance: ACETAMINOPHEN
     Dosage: 400
     Route: 048
     Dates: start: 20170822
  28. RANITIDINE. [Concomitant]
     Active Substance: RANITIDINE
     Dosage: 50
     Route: 041
     Dates: start: 20170411
  29. RANITIDINE. [Concomitant]
     Active Substance: RANITIDINE
     Dosage: 50
     Route: 041
     Dates: start: 20170627
  30. CARVEDILOL. [Concomitant]
     Active Substance: CARVEDILOL
     Indication: PRODUCT USED FOR UNKNOWN INDICATION
     Route: 065
     Dates: start: 20140519
  31. ACETAMINOPHEN. [Concomitant]
     Active Substance: ACETAMINOPHEN
     Dosage: 400
     Route: 048
     Dates: start: 20170321
  32. DEXCHLORPHENIRAMINE [Concomitant]
     Active Substance: DEXCHLORPHENIRAMINE
     Dosage: 5
     Route: 041
     Dates: start: 20170404
  33. RANITIDINE. [Concomitant]
     Active Substance: RANITIDINE
     Indication: PRODUCT USED FOR UNKNOWN INDICATION
     Dosage: 50
     Route: 041
     Dates: start: 20170307
  34. CEFAZOLIN SODIUM. [Concomitant]
     Active Substance: CEFAZOLIN SODIUM
     Indication: PRODUCT USED FOR UNKNOWN INDICATION
     Route: 065
  35. ACETAMINOPHEN. [Concomitant]
     Active Substance: ACETAMINOPHEN
     Dosage: 400
     Route: 048
     Dates: start: 20170627
  36. DEXCHLORPHENIRAMINE [Concomitant]
     Active Substance: DEXCHLORPHENIRAMINE
     Dosage: 50
     Route: 041
     Dates: start: 20170321
  37. DEXCHLORPHENIRAMINE [Concomitant]
     Active Substance: DEXCHLORPHENIRAMINE
     Dosage: 5
     Route: 041
     Dates: start: 20170328
  38. DEXCHLORPHENIRAMINE [Concomitant]
     Active Substance: DEXCHLORPHENIRAMINE
     Dosage: 5
     Route: 041
     Dates: start: 20170822
  39. PROBIOTIC [Concomitant]
     Active Substance: PROBIOTICS NOS
     Indication: PRODUCT USED FOR UNKNOWN INDICATION
     Route: 065
     Dates: start: 20140603
  40. LOXOPROFEN [Concomitant]
     Active Substance: LOXOPROFEN
     Indication: PRODUCT USED FOR UNKNOWN INDICATION
     Route: 065
     Dates: start: 20161018
  41. ELOTUZUMAB. [Concomitant]
     Active Substance: ELOTUZUMAB
     Indication: PLASMA CELL MYELOMA
     Dosage: 852 MILLIGRAM
     Route: 041
     Dates: start: 20170307, end: 20170822
  42. ACETAMINOPHEN. [Concomitant]
     Active Substance: ACETAMINOPHEN
     Dosage: 400
     Route: 048
     Dates: start: 20170425
  43. DEXCHLORPHENIRAMINE [Concomitant]
     Active Substance: DEXCHLORPHENIRAMINE
     Dosage: 5
     Route: 041
     Dates: start: 20170314
  44. RANITIDINE. [Concomitant]
     Active Substance: RANITIDINE
     Dosage: 50
     Route: 041
     Dates: start: 20170328
  45. RANITIDINE. [Concomitant]
     Active Substance: RANITIDINE
     Dosage: 50
     Route: 041
     Dates: start: 20170418
  46. NEOSYNESIN [Concomitant]
     Active Substance: PHENYLEPHRINE HYDROCHLORIDE
     Indication: PRODUCT USED FOR UNKNOWN INDICATION
     Route: 065
  47. DICLOD [Concomitant]
     Active Substance: DICLOFENAC SODIUM
     Indication: PRODUCT USED FOR UNKNOWN INDICATION
     Route: 047
  48. ACETAMINOPHEN. [Concomitant]
     Active Substance: ACETAMINOPHEN
     Dosage: 400
     Route: 048
     Dates: start: 20170411
  49. ACETAMINOPHEN. [Concomitant]
     Active Substance: ACETAMINOPHEN
     Dosage: 400
     Route: 048
     Dates: start: 20170725
  50. DEXCHLORPHENIRAMINE [Concomitant]
     Active Substance: DEXCHLORPHENIRAMINE
     Dosage: 5
     Route: 041
     Dates: start: 20170411
  51. DEXCHLORPHENIRAMINE [Concomitant]
     Active Substance: DEXCHLORPHENIRAMINE
     Dosage: 5
     Route: 041
     Dates: start: 20170418
  52. SENNA [Concomitant]
     Active Substance: SENNA LEAF\SENNOSIDES\SENNOSIDES A AND B
     Indication: PRODUCT USED FOR UNKNOWN INDICATION
     Route: 065
     Dates: start: 20120323
  53. VALACYCLOVIR [Concomitant]
     Active Substance: VALACYCLOVIR HYDROCHLORIDE
     Indication: PRODUCT USED FOR UNKNOWN INDICATION
     Route: 065
     Dates: start: 20140620
  54. LEVOFLOXACIN. [Concomitant]
     Active Substance: LEVOFLOXACIN
     Indication: THROMBOSIS PROPHYLAXIS
     Route: 065
     Dates: start: 20170627, end: 20170724
  55. MYDRIN-P [Concomitant]
     Active Substance: PHENYLEPHRINE HYDROCHLORIDE\TROPICAMIDE
     Indication: PRODUCT USED FOR UNKNOWN INDICATION
     Route: 047

REACTIONS (2)
  - Cataract [Recovered/Resolved]
  - Cataract [Recovered/Resolved]

NARRATIVE: CASE EVENT DATE: 20170906
